FAERS Safety Report 8017793-7 (Version None)
Quarter: 2012Q1

REPORT INFORMATION
  Report Type: 
  Country: None (occurrence: None)
  Receive Date: 20120103
  Receipt Date: 20111228
  Transmission Date: 20120608
  Serious: No
  Sender: FDA-Public Use
  Company Number: US-PFIZER INC-2011312661

PATIENT
  Sex: Male
  Weight: 80.272 kg

DRUGS (3)
  1. IBUPROFEN (ADVIL) [Suspect]
     Indication: ANTIINFLAMMATORY THERAPY
  2. IBUPROFEN (ADVIL) [Suspect]
     Indication: PAIN
     Dosage: 200 MG,DAILY
     Route: 048
  3. IBUPROFEN (ADVIL) [Suspect]
     Indication: BURSITIS

REACTIONS (1)
  - DRUG INEFFECTIVE [None]
